FAERS Safety Report 21439839 (Version 4)
Quarter: 2025Q1

REPORT INFORMATION
  Report Type: Spontaneous
  Country: US (occurrence: US)
  Receive Date: 20221011
  Receipt Date: 20250311
  Transmission Date: 20250409
  Serious: Yes (Hospitalization, Other)
  Sender: PFIZER
  Company Number: US-PFIZER INC-PV202200079644

PATIENT
  Age: 71 Year
  Sex: Female

DRUGS (3)
  1. XELJANZ XR [Suspect]
     Active Substance: TOFACITINIB CITRATE
     Indication: Rheumatoid arthritis
     Dosage: 11 MG, 1X/DAY
  2. XELJANZ XR [Suspect]
     Active Substance: TOFACITINIB CITRATE
     Dosage: 11 MG, 1X/DAY
     Route: 048
     Dates: start: 202207
  3. XELJANZ XR [Suspect]
     Active Substance: TOFACITINIB CITRATE

REACTIONS (17)
  - Prosthesis implantation [Unknown]
  - Rheumatoid arthritis [Unknown]
  - Knee arthroplasty [Unknown]
  - Drug ineffective [Unknown]
  - Renal disorder [Unknown]
  - Eye disorder [Unknown]
  - Balance disorder [Recovering/Resolving]
  - Laryngitis [Not Recovered/Not Resolved]
  - Fatigue [Unknown]
  - Arthralgia [Unknown]
  - Nail discolouration [Unknown]
  - Hypoaesthesia [Unknown]
  - Paraesthesia [Unknown]
  - Pain [Recovering/Resolving]
  - Sensitivity to weather change [Unknown]
  - Limb discomfort [Unknown]
  - Product dose omission in error [Unknown]
